FAERS Safety Report 8801103 (Version 2)
Quarter: 2012Q4

REPORT INFORMATION
  Report Type: 
  Country: FR (occurrence: FR)
  Receive Date: 20120921
  Receipt Date: 20121228
  Transmission Date: 20130627
  Serious: Yes (Hospitalization, Other)
  Sender: FDA-Public Use
  Company Number: FR-GLAXOSMITHKLINE-B0829546A

PATIENT
  Age: 67 None
  Sex: Male
  Weight: 55 kg

DRUGS (6)
  1. LAMICTAL [Suspect]
     Indication: EPILEPSY
     Route: 048
     Dates: start: 2012
  2. KEPPRA [Concomitant]
     Indication: EPILEPSY
     Route: 065
     Dates: start: 2012, end: 201208
  3. MODOPAR [Concomitant]
     Indication: PARKINSON^S DISEASE
     Dosage: 250MG Three times per day
     Route: 065
  4. KARDEGIC [Concomitant]
     Dosage: 75MG Per day
  5. LEVOTHYROX [Concomitant]
     Dosage: 125MCG Per day
  6. BEFIZAL [Concomitant]
     Dosage: 400MG Per day

REACTIONS (6)
  - Suicidal ideation [Recovered/Resolved]
  - Psychiatric decompensation [Recovered/Resolved]
  - Suicide attempt [Recovered/Resolved]
  - Apathy [Recovered/Resolved]
  - Akinesia [Recovered/Resolved]
  - Disturbance in attention [Recovered/Resolved]
